FAERS Safety Report 14202384 (Version 1)
Quarter: 2017Q4

REPORT INFORMATION
  Report Type: Spontaneous
  Country: US (occurrence: US)
  Receive Date: 20171117
  Receipt Date: 20171117
  Transmission Date: 20180321
  Serious: Yes (Other)
  Sender: FDA-Public Use
  Company Number: US-CELGENEUS-USA-20171103301

PATIENT
  Age: 74 Year
  Sex: Male

DRUGS (2)
  1. THALOMID [Suspect]
     Active Substance: THALIDOMIDE
     Dosage: 200 MILLIGRAM
     Route: 048
     Dates: start: 201708
  2. THALOMID [Suspect]
     Active Substance: THALIDOMIDE
     Indication: IDIOPATHIC PULMONARY FIBROSIS
     Dosage: 100 MILLIGRAM
     Route: 048
     Dates: start: 20170713

REACTIONS (1)
  - Hypersensitivity [Not Recovered/Not Resolved]

NARRATIVE: CASE EVENT DATE: 201710
